FAERS Safety Report 6752736-5 (Version None)
Quarter: 2010Q2

REPORT INFORMATION
  Report Type: 
  Country: None (occurrence: None)
  Receive Date: 20100528
  Receipt Date: 20100520
  Transmission Date: 20101027
  Serious: Yes (Other)
  Sender: FDA-Public Use
  Company Number: 1000013973

PATIENT
  Age: 63 Year
  Sex: Female

DRUGS (7)
  1. SAVELLA [Suspect]
     Indication: FIBROMYALGIA
     Dosage: 100 MG (50 MG, 2 IN 1 D), ORAL
     Route: 048
     Dates: start: 20090501, end: 20100101
  2. PLAQUENIL [Concomitant]
  3. BLOOD THINNER [Concomitant]
  4. DIURETIC [Concomitant]
  5. SLEEPING PILL [Concomitant]
  6. BLOOD PRESSURE PILL [Concomitant]
  7. PILL TO REGULATE HEARTBEAT [Concomitant]

REACTIONS (8)
  - CHEST DISCOMFORT [None]
  - DECREASED APPETITE [None]
  - DIZZINESS [None]
  - FATIGUE [None]
  - HEART RATE IRREGULAR [None]
  - HYPERHIDROSIS [None]
  - NAUSEA [None]
  - SEROTONIN SYNDROME [None]
